FAERS Safety Report 19284815 (Version 1)
Quarter: 2021Q2

REPORT INFORMATION
  Report Type: Spontaneous
  Country: US (occurrence: US)
  Receive Date: 20210521
  Receipt Date: 20210521
  Transmission Date: 20210717
  Serious: Yes (Other)
  Sender: FDA-Public Use
  Company Number: US-CADILA HEALTHCARE LIMITED-US-ZYDUS-065740

PATIENT

DRUGS (12)
  1. RITUXIMAB. [Suspect]
     Active Substance: RITUXIMAB
     Indication: CHEMOTHERAPY
     Dosage: UNK
     Route: 065
  2. VALPROATE [Suspect]
     Active Substance: VALPROIC ACID
     Indication: SEIZURE
     Route: 065
  3. MIDAZOLAM. [Concomitant]
     Active Substance: MIDAZOLAM
     Indication: SEIZURE
  4. PROPOFOL. [Concomitant]
     Active Substance: PROPOFOL
     Indication: SEIZURE
  5. CYCLOPHOSPHAMIDE. [Suspect]
     Active Substance: CYCLOPHOSPHAMIDE
     Indication: CHEMOTHERAPY
     Route: 065
  6. LORAZEPAM. [Suspect]
     Active Substance: LORAZEPAM
     Indication: SEIZURE
     Route: 065
  7. PREDNISONE. [Suspect]
     Active Substance: PREDNISONE
     Indication: CHEMOTHERAPY
     Dosage: UNK
     Route: 065
  8. DOXORUBICIN [Suspect]
     Active Substance: DOXORUBICIN
     Indication: CHEMOTHERAPY
     Dosage: UNK
     Route: 065
  9. LEVETIRACETAM. [Suspect]
     Active Substance: LEVETIRACETAM
     Indication: SEIZURE
     Dosage: UNK
     Route: 065
  10. ETOPOSIDE. [Suspect]
     Active Substance: ETOPOSIDE
     Indication: CHEMOTHERAPY
     Dosage: UNK
     Route: 065
  11. VINCRISTINE [Suspect]
     Active Substance: VINCRISTINE
     Indication: CHEMOTHERAPY
     Route: 065
  12. HYDROCORTISONE. [Concomitant]
     Active Substance: HYDROCORTISONE
     Indication: LOCALISED OEDEMA

REACTIONS (6)
  - Acute kidney injury [Unknown]
  - Febrile neutropenia [Unknown]
  - Drug ineffective [Unknown]
  - Tumour lysis syndrome [Unknown]
  - Posterior reversible encephalopathy syndrome [Unknown]
  - Pseudomonal bacteraemia [Unknown]
